FAERS Safety Report 24420533 (Version 1)
Quarter: 2024Q4

REPORT INFORMATION
  Report Type: Spontaneous
  Country: US (occurrence: US)
  Receive Date: 20241010
  Receipt Date: 20241010
  Transmission Date: 20250115
  Serious: No
  Sender: BIOGEN
  Company Number: US-BIOGEN-2024BI01284994

PATIENT
  Age: 31 Year
  Sex: Female

DRUGS (1)
  1. SPINRAZA [Suspect]
     Active Substance: NUSINERSEN
     Indication: Product used for unknown indication
     Route: 050

REACTIONS (3)
  - Procedural pain [Unknown]
  - Anaesthetic complication [Unknown]
  - Procedural complication [Unknown]

NARRATIVE: CASE EVENT DATE: 20240925
